FAERS Safety Report 6862730-1 (Version None)
Quarter: 2010Q3

REPORT INFORMATION
  Report Type: 
  Country: None (occurrence: None)
  Receive Date: 20100721
  Receipt Date: 20100715
  Transmission Date: 20110219
  Serious: Yes (Hospitalization)
  Sender: FDA-Public Use
  Company Number: ES-ELI_LILLY_AND_COMPANY-ES201007003150

PATIENT
  Age: 61 Year
  Sex: Male
  Weight: 91 kg

DRUGS (10)
  1. BYETTA [Suspect]
     Dosage: 5 UG, UNKNOWN
     Route: 058
     Dates: start: 20091111, end: 20091211
  2. BYETTA [Suspect]
     Dosage: 10 UG, UNKNOWN
     Route: 058
     Dates: start: 20091211, end: 20100709
  3. METFORMIN [Concomitant]
     Dosage: UNK, UNKNOWN
     Dates: end: 20100201
  4. METFORMIN [Concomitant]
     Dosage: UNK, UNKNOWN
     Route: 065
     Dates: start: 20100709
  5. CLOPIDOGREL [Concomitant]
     Dosage: UNK, UNKNOWN
  6. LACEROL [Concomitant]
     Dosage: UNK, UNKNOWN
  7. MOLSIDAIN [Concomitant]
     Dosage: 2 MG, UNKNOWN
     Route: 065
  8. OLMETEC [Concomitant]
     Dosage: UNK, UNKNOWN
     Route: 065
  9. OMEPRAZOLE [Concomitant]
     Dosage: 40 MG, UNKNOWN
  10. SALIDUR [Concomitant]
     Dosage: 25/77 UNK, UNKNOWN
     Route: 065

REACTIONS (2)
  - COLON CANCER [None]
  - WEIGHT DECREASED [None]
